FAERS Safety Report 21221305 (Version 1)
Quarter: 2022Q3

REPORT INFORMATION
  Report Type: Spontaneous
  Country: FR (occurrence: FR)
  Receive Date: 20220817
  Receipt Date: 20220817
  Transmission Date: 20221027
  Serious: Yes (Hospitalization)
  Sender: FDA-Public Use
  Company Number: FR-AFSSAPS-TO20222766

PATIENT
  Age: 86 Year
  Sex: Female
  Weight: 70 kg

DRUGS (5)
  1. MIRTAZAPINE [Suspect]
     Active Substance: MIRTAZAPINE
     Indication: Mixed anxiety and depressive disorder
     Dosage: 7.5 MILLIGRAM, ONCE A DAY(LC)
     Route: 048
  2. DOXYLAMINE [Suspect]
     Active Substance: DOXYLAMINE
     Indication: Mixed anxiety and depressive disorder
     Dosage: 15 MILLIGRAM, ONCE A DAY(LC)
     Route: 048
  3. SKENAN [Suspect]
     Active Substance: MORPHINE SULFATE
     Indication: Pain
     Dosage: 20 MILLIGRAM, ONCE A DAY
     Route: 048
     Dates: start: 20220209, end: 20220214
  4. RISPERDAL [Suspect]
     Active Substance: RISPERIDONE
     Indication: Pain
     Dosage: 2 MILLIGRAM, ONCE A DAY
     Route: 048
     Dates: start: 20220209, end: 20220214
  5. OXAZEPAM [Suspect]
     Active Substance: OXAZEPAM
     Indication: Mixed anxiety and depressive disorder
     Dosage: 20 MILLIGRAM, ONCE A DAY(LC)
     Route: 048

REACTIONS (2)
  - Disturbance in attention [Not Recovered/Not Resolved]
  - Confusional state [Not Recovered/Not Resolved]

NARRATIVE: CASE EVENT DATE: 20220214
